FAERS Safety Report 12694785 (Version 1)
Quarter: 2016Q3

REPORT INFORMATION
  Report Type: Spontaneous
  Country: TW (occurrence: TW)
  Receive Date: 20160829
  Receipt Date: 20160829
  Transmission Date: 20161109
  Serious: Yes (Hospitalization)
  Sender: FDA-Public Use
  Company Number: TW-SA-2016SA152193

PATIENT
  Age: 65 Year
  Sex: Male

DRUGS (6)
  1. BARNIDIPINE [Concomitant]
     Active Substance: BARNIDIPINE
     Route: 065
  2. EPINEPHRINE. [Suspect]
     Active Substance: EPINEPHRINE
     Dosage: 28 ML OF DILUTED EPINEPHERINE (1:10000) ENDOSCOPIC MUCOSAL INJECTION
     Route: 051
  3. IRBESARTAN. [Concomitant]
     Active Substance: IRBESARTAN
     Route: 065
  4. GLIQUIDONE [Concomitant]
     Active Substance: GLIQUIDONE
     Route: 065
  5. EPINEPHRINE. [Suspect]
     Active Substance: EPINEPHRINE
     Dosage: 16 ML OF DILUTED EPINEPHRINE,  ENDOSCOPIC MUCOSAL INJECTION
     Route: 051
  6. CARVEDILOL. [Concomitant]
     Active Substance: CARVEDILOL
     Route: 065

REACTIONS (8)
  - Renal artery thrombosis [Recovered/Resolved]
  - Abdominal pain lower [Unknown]
  - Blood creatinine increased [Unknown]
  - Renal infarct [Unknown]
  - Acute kidney injury [Unknown]
  - Blood urea increased [Unknown]
  - Ischaemic nephropathy [Unknown]
  - Anuria [Unknown]
